FAERS Safety Report 7808371-0 (Version None)
Quarter: 2011Q4

REPORT INFORMATION
  Report Type: 
  Country: None (occurrence: None)
  Receive Date: 20111007
  Receipt Date: 20110929
  Transmission Date: 20120403
  Serious: Yes (Death, Other)
  Sender: FDA-Public Use
  Company Number: 1060208

PATIENT
  Age: 11 Day
  Sex: Male
  Weight: 3.67 kg

DRUGS (4)
  1. GENTAMICIN [Concomitant]
  2. FLOXACILLIN SODIUM [Concomitant]
  3. FUROSEMIDE [Concomitant]
  4. PHENYTOIN [Suspect]
     Indication: CONVULSION
     Dosage: 13 MG MILLIGRAM(S), 1 DAY, INTRAVENOUS (NOT OTHERWISE SPECIFIED)
     Route: 042
     Dates: start: 20110621, end: 20110702

REACTIONS (3)
  - HYPOXIC-ISCHAEMIC ENCEPHALOPATHY [None]
  - CONDITION AGGRAVATED [None]
  - CARDIAC FAILURE CONGESTIVE [None]
